FAERS Safety Report 6254588-9 (Version None)
Quarter: 2009Q3

REPORT INFORMATION
  Report Type: 
  Country: None (occurrence: None)
  Receive Date: 20090702
  Receipt Date: 20090626
  Transmission Date: 20100115
  Serious: Yes (Other)
  Sender: FDA-Public Use
  Company Number: A0793974A

PATIENT
  Age: 35 Year
  Sex: Female

DRUGS (3)
  1. PAROXETINE HCL [Suspect]
     Indication: DEPRESSION
     Route: 048
     Dates: start: 20081101, end: 20090624
  2. ANTI-ANXIETY MED- NAME UNKNOWN [Concomitant]
     Indication: ANXIETY
  3. ANTI-PSYCHOTIC MEDICATION [Concomitant]

REACTIONS (5)
  - AGGRESSION [None]
  - IRRITABILITY [None]
  - LOGORRHOEA [None]
  - MANIA [None]
  - PSYCHOTIC DISORDER [None]
